FAERS Safety Report 7896664-0 (Version None)
Quarter: 2011Q4

REPORT INFORMATION
  Report Type: 
  Country: None (occurrence: None)
  Receive Date: 20111107
  Receipt Date: 20110824
  Transmission Date: 20120403
  Serious: No
  Sender: FDA-Public Use
  Company Number: US-BIOGENIDEC-2011BI032322

PATIENT
  Sex: Female

DRUGS (1)
  1. TYSABRI [Suspect]
     Indication: MULTIPLE SCLEROSIS
     Route: 042
     Dates: start: 20110427

REACTIONS (10)
  - AMENORRHOEA [None]
  - MENTAL IMPAIRMENT [None]
  - CENTRAL NERVOUS SYSTEM LESION [None]
  - FALL [None]
  - COGNITIVE DISORDER [None]
  - FOOT FRACTURE [None]
  - PAIN [None]
  - GENERAL SYMPTOM [None]
  - VISUAL IMPAIRMENT [None]
  - MULTIPLE SCLEROSIS [None]
